FAERS Safety Report 5895010-1 (Version None)
Quarter: 2008Q3

REPORT INFORMATION
  Report Type: 
  Country: None (occurrence: None)
  Receive Date: 20080924
  Receipt Date: 20080918
  Transmission Date: 20090109
  Serious: Yes (Death, Hospitalization, Congenital Anomaly)
  Sender: FDA-Public Use
  Company Number: ZA-BRISTOL-MYERS SQUIBB COMPANY-14288252

PATIENT
  Age: 2 Month
  Sex: Male

DRUGS (1)
  1. EFAVIRENZ [Suspect]
     Indication: HIV INFECTION
     Route: 064

REACTIONS (4)
  - BRONCHOPNEUMONIA [None]
  - CARDIAC FAILURE [None]
  - PREGNANCY [None]
  - TRUNCUS ARTERIOSUS PERSISTENT [None]
